FAERS Safety Report 18787773 (Version 1)
Quarter: 2021Q1

REPORT INFORMATION
  Report Type: Spontaneous
  Country: US (occurrence: US)
  Receive Date: 20210125
  Receipt Date: 20210125
  Transmission Date: 20210419
  Serious: No
  Sender: FDA-Public Use
  Company Number: US-ROCHE-2683476

PATIENT
  Sex: Male

DRUGS (6)
  1. BENADRYL [Concomitant]
     Active Substance: DIPHENHYDRAMINE HYDROCHLORIDE
  2. REVLIMID [Suspect]
     Active Substance: LENALIDOMIDE
     Indication: FOLLICLE CENTRE LYMPHOMA DIFFUSE SMALL CELL LYMPHOMA
     Dosage: THERAPY DETAIL:UNKNOWN ; 20MG 1 IN 2 DAY ,PO
     Route: 048
     Dates: start: 20200612, end: 20200616
  3. REVLIMID [Suspect]
     Active Substance: LENALIDOMIDE
     Dosage: ONGOING:YES ; 10MG 1 IN 1 DAY ,PO
     Route: 048
     Dates: start: 2020
  4. RITUXAN [Suspect]
     Active Substance: RITUXIMAB
     Indication: PRODUCT USED FOR UNKNOWN INDICATION
     Dosage: THERAPY DETAILS: UNKNOWN
     Route: 065
     Dates: start: 20200617
  5. BETAMOX PLUS (PORTUGAL) [Concomitant]
  6. MEDROL [Concomitant]
     Active Substance: METHYLPREDNISOLONE

REACTIONS (1)
  - Urticaria [Recovered/Resolved]
